FAERS Safety Report 5010512-8 (Version None)
Quarter: 2006Q2

REPORT INFORMATION
  Report Type: 
  Country: None (occurrence: None)
  Receive Date: 20060525
  Receipt Date: 20051103
  Transmission Date: 20061013
  Serious: No
  Sender: FDA-Public Use
  Company Number: US-GLAXOSMITHKLINE-A0580782A

PATIENT
  Age: 59 Year
  Sex: Female

DRUGS (2)
  1. BACTROBAN [Suspect]
     Indication: SKIN INFECTION
     Route: 061
     Dates: start: 20030101
  2. ATROVENT [Concomitant]

REACTIONS (3)
  - ERYTHEMA [None]
  - HYPERSENSITIVITY [None]
  - INFLAMMATION [None]
